FAERS Safety Report 6241925-4 (Version None)
Quarter: 2009Q2

REPORT INFORMATION
  Report Type: 
  Country: None (occurrence: None)
  Receive Date: 20090622
  Receipt Date: 20090604
  Transmission Date: 20091009
  Serious: Yes (Death)
  Sender: FDA-Public Use
  Company Number: 2009AL002562

PATIENT
  Age: 64 Year
  Sex: Male
  Weight: 98.4306 kg

DRUGS (20)
  1. DIGOXIN [Suspect]
     Dosage: 0.25MG, DAILY, PO
     Route: 048
     Dates: start: 20030101
  2. UROCIT [Concomitant]
  3. METFORMIN HCL [Concomitant]
  4. MICARDIS [Concomitant]
  5. TRENTAL [Concomitant]
  6. LASIX [Concomitant]
  7. LIPITOR [Concomitant]
  8. PLAVIX [Concomitant]
  9. HYDRALAZINE HCL [Concomitant]
  10. CLONIDINE [Concomitant]
  11. ALLOPURINOL [Concomitant]
  12. LOPRESSOR [Concomitant]
  13. ASPIRIN [Concomitant]
  14. FOLIC ACID [Concomitant]
  15. VITAMIN E [Concomitant]
  16. ASCORBIC ACID [Concomitant]
  17. MULTI-VITAMIN [Concomitant]
  18. AMARYL [Concomitant]
  19. HUMALOG [Concomitant]
  20. STARLIX [Concomitant]

REACTIONS (7)
  - ATRIAL FIBRILLATION [None]
  - COUGH [None]
  - ECONOMIC PROBLEM [None]
  - HAEMORRHAGE [None]
  - INJURY [None]
  - MYOCARDIAL INFARCTION [None]
  - SURGERY [None]
